FAERS Safety Report 6930099-X (Version None)
Quarter: 2010Q3

REPORT INFORMATION
  Report Type: 
  Country: None (occurrence: None)
  Receive Date: 20100818
  Receipt Date: 20100811
  Transmission Date: 20110219
  Serious: Yes (Hospitalization, Other)
  Sender: FDA-Public Use
  Company Number: US-SANOFI-AVENTIS-2010SA048171

PATIENT
  Age: 65 Year
  Sex: Female

DRUGS (4)
  1. LANTUS [Suspect]
     Dosage: 40 UNITS IN THE AM AND 90 UNITS IN THE PM
     Route: 058
  2. FUROSEMIDE [Concomitant]
     Indication: FLUID RETENTION
  3. AVALIDE [Concomitant]
     Indication: BLOOD PRESSURE
     Dosage: 300MG/25MG
     Dates: end: 20100801
  4. AVALIDE [Concomitant]
     Dosage: ONE HALF TABLET OF 300MG/25MG
     Dates: start: 20100801

REACTIONS (6)
  - ATRIAL FIBRILLATION [None]
  - CARDIAC FAILURE [None]
  - LOCALISED INFECTION [None]
  - OEDEMA PERIPHERAL [None]
  - PNEUMONIA [None]
  - PYREXIA [None]
